FAERS Safety Report 5003569-1 (Version None)
Quarter: 2006Q2

REPORT INFORMATION
  Report Type: 
  Country: None (occurrence: None)
  Receive Date: 20060511
  Receipt Date: 20060301
  Transmission Date: 20061013
  Serious: Yes (Death, Hospitalization)
  Sender: FDA-Public Use
  Company Number: 2006058117

PATIENT
  Age: 82 Year
  Sex: Female

DRUGS (3)
  1. DELTA-CORTEF [Suspect]
     Indication: RHEUMATOID ARTHRITIS
     Dosage: 4 MG (4 MG, 1 IN 1 D), ORAL
     Route: 048
     Dates: start: 20050413, end: 20060101
  2. ENBREL [Suspect]
     Indication: RHEUMATOID ARTHRITIS
     Dosage: 50 MG (50 MG, 1 IN 1 WK) , SUBCUTANEOUS
     Route: 058
     Dates: start: 20050406, end: 20060101
  3. METHOTREXATE [Concomitant]

REACTIONS (11)
  - ANOREXIA [None]
  - CHEST X-RAY ABNORMAL [None]
  - CONDITION AGGRAVATED [None]
  - COUGH [None]
  - DIARRHOEA [None]
  - DIFFUSE ALVEOLAR DAMAGE [None]
  - DYSPNOEA [None]
  - INTERSTITIAL LUNG DISEASE [None]
  - LUNG INJURY [None]
  - PNEUMONIA [None]
  - RESPIRATORY FAILURE [None]
